FAERS Safety Report 4631108-3 (Version None)
Quarter: 2005Q2

REPORT INFORMATION
  Report Type: 
  Country: None (occurrence: None)
  Receive Date: 20050406
  Receipt Date: 20050329
  Transmission Date: 20051028
  Serious: Yes (Other)
  Sender: FDA-Public Use
  Company Number: 2005022000

PATIENT
  Age: 48 Year
  Sex: Male
  Weight: 128.8216 kg

DRUGS (10)
  1. CELECOXIB (CELECOXIB) [Suspect]
     Indication: COLORECTAL CANCER METASTATIC
     Dosage: 800 MG (400 MG, 2 IN 1 D), ORAL
     Route: 048
     Dates: start: 20041008, end: 20041220
  2. CAMPTOSAR [Suspect]
     Indication: COLORECTAL CANCER METASTATIC
     Dosage: 313 MG (125 MG/M2, 1 IN 21 D), INTRAVENOUS
     Route: 042
     Dates: start: 20041008
  3. FLUOROURACIL [Suspect]
     Indication: COLORECTAL CANCER METASTATIC
     Dosage: 1250 MG (500 MG/M2, 1 IN 21 D), INTRAVENOUS
     Route: 042
     Dates: start: 20041008
  4. LEUCOVORIN CALCIUM [Suspect]
     Indication: COLORECTAL CANCER METASTATIC
     Dosage: 50 MG (20 MG/M2, 1 IN 21 D), INTRAVENOUS
     Route: 042
     Dates: start: 20041008
  5. AVASTIN [Suspect]
     Indication: COLORECTAL CANCER METASTATIC
     Dosage: 998 MG (7.5 MG/KG, 1 IN 21 D), INTRAVENOUS
     Route: 042
     Dates: start: 20041008
  6. TEMAZEPAM [Concomitant]
  7. TUSSIONEX (HYDROCODONE, PHENYLTOLOXAMINE) [Concomitant]
  8. FUROSEMIDE [Concomitant]
  9. POTASSIUM CHLORIDE [Concomitant]
  10. PREDNISONE [Concomitant]

REACTIONS (4)
  - ALVEOLITIS [None]
  - ATRIAL FIBRILLATION [None]
  - CATHETERISATION CARDIAC ABNORMAL [None]
  - PULMONARY OEDEMA [None]
